FAERS Safety Report 7015774-3 (Version None)
Quarter: 2010Q3

REPORT INFORMATION
  Report Type: 
  Country: None (occurrence: None)
  Receive Date: 20100927
  Receipt Date: 20090819
  Transmission Date: 20110219
  Serious: Yes (Other)
  Sender: FDA-Public Use
  Company Number: US-ASTRAZENECA-2009SE08876

PATIENT
  Age: 779 Month
  Sex: Female
  Weight: 64 kg

DRUGS (3)
  1. ARIMIDEX [Suspect]
     Indication: BREAST CANCER
     Route: 048
     Dates: start: 20070101, end: 20090801
  2. ARIMIDEX [Suspect]
     Indication: LUNG NEOPLASM
     Route: 048
     Dates: start: 20070101, end: 20090801
  3. BONIVA [Concomitant]

REACTIONS (3)
  - BONE DENSITY DECREASED [None]
  - DISEASE PROGRESSION [None]
  - PAIN [None]
